FAERS Safety Report 25353644 (Version 1)
Quarter: 2025Q2

REPORT INFORMATION
  Report Type: Spontaneous
  Country: CN (occurrence: CN)
  Receive Date: 20250523
  Receipt Date: 20250523
  Transmission Date: 20250717
  Serious: Yes (Hospitalization)
  Sender: BAYER HEALTHCARE PHARMACEUTICALS INC.
  Company Number: CN-BAYER-2025A069484

PATIENT
  Age: 78 Year
  Sex: Female

DRUGS (2)
  1. KERENDIA [Suspect]
     Active Substance: FINERENONE
     Indication: Diabetic nephropathy
     Dosage: 1 DF, QD
     Route: 048
     Dates: start: 20241221, end: 20250514
  2. KERENDIA [Suspect]
     Active Substance: FINERENONE
     Indication: Proteinuria

REACTIONS (2)
  - Hyperkalaemia [Recovered/Resolved]
  - Chest discomfort [None]

NARRATIVE: CASE EVENT DATE: 20250514
